FAERS Safety Report 7053231-9 (Version None)
Quarter: 2010Q4

REPORT INFORMATION
  Report Type: 
  Country: None (occurrence: None)
  Receive Date: 20101013
  Receipt Date: 20101005
  Transmission Date: 20110411
  Serious: Yes (Hospitalization)
  Sender: FDA-Public Use
  Company Number: 2010SP052500

PATIENT
  Age: 50 Year
  Sex: Female

DRUGS (12)
  1. TEMODAL [Suspect]
     Indication: PRODUCT USED FOR UNKNOWN INDICATION
     Dosage: 120 MG;QD;PO
     Route: 048
     Dates: start: 20100330, end: 20100512
  2. KAREDEGIC [Concomitant]
  3. PLAVIX [Concomitant]
  4. BISOPROLOL FUMARATE [Concomitant]
  5. TAHOR [Concomitant]
  6. NEXIUM [Concomitant]
  7. COVERSL [Concomitant]
  8. MEDROL [Concomitant]
  9. SOLU-MEDROL [Concomitant]
  10. CACIT D3 [Concomitant]
  11. ARANESP [Concomitant]
  12. LOVENOX [Concomitant]

REACTIONS (10)
  - BONE MARROW FAILURE [None]
  - COUGH [None]
  - DYSPHAGIA [None]
  - LISTERIOSIS [None]
  - LIVEDO RETICULARIS [None]
  - ODYNOPHAGIA [None]
  - PANCYTOPENIA [None]
  - PURPURA [None]
  - SEPTIC SHOCK [None]
  - SOMNOLENCE [None]
